FAERS Safety Report 9565117 (Version 2)
Quarter: 2013Q3

REPORT INFORMATION
  Report Type: Spontaneous
  Country: GB (occurrence: GB)
  Receive Date: 20130930
  Receipt Date: 20130930
  Transmission Date: 20140515
  Serious: Yes (Hospitalization)
  Sender: FDA-Public Use
  Company Number: GB-ABBVIE-12P-167-0993561-00

PATIENT
  Age: 25 Year
  Sex: Male
  Weight: 63 kg

DRUGS (3)
  1. HUMIRA [Suspect]
     Indication: CROHN^S DISEASE
     Route: 058
     Dates: start: 201012, end: 201209
  2. HUMIRA [Suspect]
     Indication: CROHN^S DISEASE
  3. AZATHIOPRINE [Concomitant]
     Indication: CROHN^S DISEASE
     Route: 048
     Dates: start: 201002

REACTIONS (8)
  - Erythema nodosum [Recovering/Resolving]
  - Sarcoidosis [Recovering/Resolving]
  - Arthralgia [Recovering/Resolving]
  - Weight decreased [Recovering/Resolving]
  - Hilar lymphadenopathy [Recovering/Resolving]
  - Lymphadenopathy mediastinal [Recovering/Resolving]
  - Necrotising granulomatous lymphadenitis [Recovering/Resolving]
  - Angiotensin converting enzyme increased [Unknown]
